FAERS Safety Report 17307374 (Version 1)
Quarter: 2020Q1

REPORT INFORMATION
  Report Type: Spontaneous
  Country: US (occurrence: US)
  Receive Date: 20200122
  Receipt Date: 20200122
  Transmission Date: 20200409
  Serious: Yes (Other)
  Sender: FDA-Public Use
  Company Number: None

PATIENT
  Age: 33 Year
  Sex: Female
  Weight: 67.5 kg

DRUGS (1)
  1. LARIAM [Suspect]
     Active Substance: MEFLOQUINE HYDROCHLORIDE
     Indication: MALARIA PROPHYLAXIS
     Route: 048
     Dates: start: 20161220, end: 20161220

REACTIONS (11)
  - Anxiety [None]
  - Tremor [None]
  - Tinnitus [None]
  - Fear [None]
  - Anger [None]
  - Feeling of despair [None]
  - Apathy [None]
  - Depressed mood [None]
  - Mood altered [None]
  - Palpitations [None]
  - Panic attack [None]

NARRATIVE: CASE EVENT DATE: 20161220
